FAERS Safety Report 5273875-4 (Version None)
Quarter: 2007Q1

REPORT INFORMATION
  Report Type: 
  Country: None (occurrence: None)
  Receive Date: 20070323
  Receipt Date: 20070316
  Transmission Date: 20070707
  Serious: Yes (Life-Threatening)
  Sender: FDA-Public Use
  Company Number: BR-ROCHE-487974

PATIENT
  Age: 40 Year
  Sex: Female
  Weight: 64.3 kg

DRUGS (5)
  1. PEG-INTERFERON ALFA 2A (RO 25-8310) [Suspect]
     Route: 058
     Dates: start: 20061019, end: 20070315
  2. RIBAVIRIN [Suspect]
     Route: 048
     Dates: start: 20061019, end: 20070315
  3. VITAMIN B COMPLEX CAP [Concomitant]
     Dates: start: 20070125
  4. BROMOPRIDE [Concomitant]
     Dates: start: 20070125, end: 20070215
  5. FOLIC ACID [Concomitant]
     Dates: start: 20070125

REACTIONS (1)
  - PERICARDIAL EFFUSION [None]
